FAERS Safety Report 6329660-5 (Version None)
Quarter: 2009Q3

REPORT INFORMATION
  Report Type: 
  Country: None (occurrence: None)
  Receive Date: 20090824
  Receipt Date: 20090317
  Transmission Date: 20100115
  Serious: Yes (Other)
  Sender: FDA-Public Use
  Company Number: 2009-GWUS-0190

PATIENT
  Age: 10 Month
  Sex: Male

DRUGS (2)
  1. PROPRANOLOL [Suspect]
  2. FLECAINIDE ACETATE [Suspect]
     Dosage: 50MG

REACTIONS (15)
  - ATRIOVENTRICULAR BLOCK FIRST DEGREE [None]
  - BRADYCARDIA [None]
  - BUNDLE BRANCH BLOCK RIGHT [None]
  - DRUG TOXICITY [None]
  - ELECTROCARDIOGRAM PR PROLONGATION [None]
  - ELECTROCARDIOGRAM QRS COMPLEX PROLONGED [None]
  - ELECTROCARDIOGRAM QRS COMPLEX SHORTENED [None]
  - ELECTROCARDIOGRAM QT PROLONGED [None]
  - ELECTROCARDIOGRAM ST SEGMENT [None]
  - ELECTROCARDIOGRAM T WAVE INVERSION [None]
  - HYPOTENSION [None]
  - LETHARGY [None]
  - SINUS ARREST [None]
  - SINUS RHYTHM [None]
  - VOMITING [None]
